FAERS Safety Report 20823853 (Version 1)
Quarter: 2022Q2

REPORT INFORMATION
  Report Type: Spontaneous
  Country: US (occurrence: US)
  Receive Date: 20220513
  Receipt Date: 20220513
  Transmission Date: 20220721
  Serious: Yes (Other)
  Sender: FDA-Public Use
  Company Number: US-CELLTRION INC.-2022US006091

PATIENT

DRUGS (2)
  1. TRUXIMA [Suspect]
     Active Substance: RITUXIMAB-ABBS
     Indication: Thrombotic thrombocytopenic purpura
     Dosage: 900 MG INFUSION 4 WEEKS EVERY 6 MONTHS (4-100MG VIALS)
  2. TRUXIMA [Suspect]
     Active Substance: RITUXIMAB-ABBS
     Dosage: 900 MG INFUSION 4 WEEKS EVERY 6 MONTHS (500MG VIAL)

REACTIONS (6)
  - Thrombotic thrombocytopenic purpura [Unknown]
  - Accidental exposure to product [Unknown]
  - Exposure via skin contact [Unknown]
  - Device leakage [Unknown]
  - Incorrect dose administered [Unknown]
  - Off label use [Unknown]
